APPROVED DRUG PRODUCT: WAMPOCAP
Active Ingredient: NIACIN
Strength: 500MG
Dosage Form/Route: CAPSULE;ORAL
Application: N011073 | Product #003
Applicant: MEDPOINTE PHARMACEUTICALS MEDPOINTE HEALTHCARE INC
Approved: Approved Prior to Jan 1, 1982 | RLD: No | RS: No | Type: DISCN